FAERS Safety Report 11009628 (Version 1)
Quarter: 2015Q2

REPORT INFORMATION
  Report Type: Spontaneous
  Country: US (occurrence: US)
  Receive Date: 20150410
  Receipt Date: 20150410
  Transmission Date: 20150821
  Serious: No
  Sender: FDA-Public Use
  Company Number: US-BAUSCH-SYM-2014-23256

PATIENT
  Age: 77 Year
  Sex: Female
  Weight: 69.01 kg

DRUGS (1)
  1. NITROGLYCERIN 0.4 MG/HR [Suspect]
     Active Substance: NITROGLYCERIN
     Indication: ANGINA PECTORIS
     Route: 062
     Dates: start: 1999, end: 20140707

REACTIONS (2)
  - Urticaria [Recovering/Resolving]
  - Application site pruritus [Recovering/Resolving]

NARRATIVE: CASE EVENT DATE: 20140707
